FAERS Safety Report 22236929 (Version 2)
Quarter: 2023Q2

REPORT INFORMATION
  Report Type: Report from Study
  Country: US (occurrence: US)
  Receive Date: 20230420
  Receipt Date: 20230426
  Transmission Date: 20230721
  Serious: Yes (Other)
  Sender: FDA-Public Use
  Company Number: US-BIOVITRUM-2023-US-009277

PATIENT
  Age: 33 Year
  Sex: Female

DRUGS (3)
  1. KINERET [Suspect]
     Active Substance: ANAKINRA
     Indication: Pyrexia
     Dosage: 100 MG DAILY
     Route: 058
     Dates: start: 20230317
  2. CYMBALTA [Concomitant]
     Active Substance: DULOXETINE HYDROCHLORIDE
     Indication: Product used for unknown indication
     Dosage: 60 MG DAILY
  3. CYMBALTA [Concomitant]
     Active Substance: DULOXETINE HYDROCHLORIDE
     Dosage: 90 MG DAILY

REACTIONS (5)
  - Vitamin D abnormal [Unknown]
  - Neutropenia [Unknown]
  - Intentional product misuse [Not Recovered/Not Resolved]
  - Injection site reaction [Unknown]
  - Urticaria [Unknown]

NARRATIVE: CASE EVENT DATE: 20230317
